FAERS Safety Report 14561843 (Version 1)
Quarter: 2018Q1

REPORT INFORMATION
  Report Type: Spontaneous
  Country: GB (occurrence: GB)
  Receive Date: 20180222
  Receipt Date: 20180222
  Transmission Date: 20180509
  Serious: Yes (Hospitalization)
  Sender: FDA-Public Use
  Company Number: GB-EISAI MEDICAL RESEARCH-EC-2018-036342

PATIENT
  Age: 81 Year
  Sex: Female

DRUGS (1)
  1. DONEPEZIL. [Suspect]
     Active Substance: DONEPEZIL
     Indication: DEMENTIA ALZHEIMER^S TYPE
     Route: 048
     Dates: start: 20131007

REACTIONS (3)
  - Urinary incontinence [Unknown]
  - Cerebellar haemorrhage [Unknown]
  - Anal incontinence [Unknown]

NARRATIVE: CASE EVENT DATE: 20131009
